FAERS Safety Report 6931935-3 (Version None)
Quarter: 2010Q3

REPORT INFORMATION
  Report Type: 
  Country: None (occurrence: None)
  Receive Date: 20100819
  Receipt Date: 20100810
  Transmission Date: 20110219
  Serious: Yes (Other)
  Sender: FDA-Public Use
  Company Number: JP-BRISTOL-MYERS SQUIBB COMPANY-15235229

PATIENT
  Age: 29 Month
  Sex: Male

DRUGS (2)
  1. ETOPOSIDE [Suspect]
     Dosage: CUMULATIVE DOSE: 2,200 MG/M2
  2. CYTARABINE [Suspect]

REACTIONS (2)
  - PANCREATITIS [None]
  - PNEUMONIA [None]
